FAERS Safety Report 9337652 (Version 1)
Quarter: 2013Q2

REPORT INFORMATION
  Report Type: Spontaneous
  Country: US (occurrence: US)
  Receive Date: 20130607
  Receipt Date: 20130607
  Transmission Date: 20140414
  Serious: No
  Sender: FDA-Public Use
  Company Number: US-009507513-1306USA002197

PATIENT
  Sex: Female

DRUGS (3)
  1. ASMANEX TWISTHALER [Suspect]
     Indication: RHINITIS
     Dosage: 220 MICROGRAM, QD
     Route: 055
     Dates: start: 201106
  2. METFORMIN [Concomitant]
  3. SINGULAIR [Concomitant]

REACTIONS (2)
  - Product physical issue [Unknown]
  - Off label use [Unknown]
